FAERS Safety Report 17021245 (Version 1)
Quarter: 2019Q4

REPORT INFORMATION
  Report Type: Spontaneous
  Country: GB (occurrence: GB)
  Receive Date: 20191112
  Receipt Date: 20191112
  Transmission Date: 20200122
  Serious: Yes (Death, Hospitalization, Other)
  Sender: FDA-Public Use
  Company Number: GB-CASPER PHARMA LLC-2019CAS000565

PATIENT
  Age: 71 Year
  Sex: Male

DRUGS (3)
  1. CAPTOPRIL. [Suspect]
     Active Substance: CAPTOPRIL
     Indication: CARDIAC FAILURE
     Dosage: 25 MILLIGRAM, BID
     Route: 065
  2. CAPTOPRIL. [Suspect]
     Active Substance: CAPTOPRIL
     Indication: HYPERTENSION
  3. ALLOPURINOL. [Suspect]
     Active Substance: ALLOPURINOL
     Indication: CHRONIC KIDNEY DISEASE
     Dosage: 100 MILLIGRAM, BID
     Route: 065
     Dates: start: 19830823

REACTIONS (3)
  - Drug interaction [Fatal]
  - Stevens-Johnson syndrome [Fatal]
  - Product use in unapproved indication [Unknown]
